FAERS Safety Report 10040514 (Version 1)
Quarter: 2014Q1

REPORT INFORMATION
  Report Type: Spontaneous
  Country: US (occurrence: US)
  Receive Date: 20140327
  Receipt Date: 20140327
  Transmission Date: 20141002
  Serious: No
  Sender: FDA-Public Use
  Company Number: US-TEVA-444288USA

PATIENT
  Sex: Female

DRUGS (5)
  1. BACTRIM [Suspect]
  2. FLUCONAZOLE [Concomitant]
     Dosage: 150 MILLIGRAM DAILY;
  3. OLMESARTAN MEDOXOMIL [Concomitant]
     Dosage: 20 MILLIGRAM DAILY;
  4. JANUMET [Concomitant]
     Dosage: 2 DOSAGE FORMS DAILY; 50-1000 MG
  5. INSULIN GLARGINE [Concomitant]
     Dosage: 2 DOSAGE FORMS DAILY; 100 UNIT/ML (3ML) INSULIN PEN 85 UNITS

REACTIONS (1)
  - Drug hypersensitivity [Unknown]
